FAERS Safety Report 17263461 (Version 1)
Quarter: 2020Q1

REPORT INFORMATION
  Report Type: Spontaneous
  Country: US (occurrence: US)
  Receive Date: 20200112
  Receipt Date: 20200112
  Transmission Date: 20200409
  Serious: Yes (Other)
  Sender: FDA-Public Use
  Company Number: None

PATIENT
  Age: 46 Year
  Sex: Female
  Weight: 45 kg

DRUGS (1)
  1. ELURYNG [Suspect]
     Active Substance: ETHINYL ESTRADIOL\ETONOGESTREL
     Dosage: ?          OTHER FREQUENCY:1 FOR 3 WEEKS;?
     Route: 067
     Dates: start: 20191228, end: 20200109

REACTIONS (4)
  - Product substitution issue [None]
  - Headache [None]
  - Metrorrhagia [None]
  - Muscle spasms [None]

NARRATIVE: CASE EVENT DATE: 20191228
